FAERS Safety Report 8968324 (Version 1)
Quarter: 2012Q4

REPORT INFORMATION
  Report Type: Spontaneous
  Country: US (occurrence: None)
  Receive Date: 20121214
  Receipt Date: 20121214
  Transmission Date: 20130627
  Serious: Yes (Life-Threatening, Hospitalization, Disabling)
  Sender: FDA-Public Use
  Company Number: None

PATIENT
  Age: 14 Year
  Sex: Female
  Weight: 83.92 kg

DRUGS (2)
  1. LAMOTRIGINE [Suspect]
     Indication: BORDERLINE PERSONALITY DISORDER
     Dosage: 1/2  for  2  week,  then  1     nightly
     Dates: start: 20120323, end: 20120401
  2. LAMOTRIGINE [Suspect]
     Indication: DEPRESSON
     Dosage: 1/2  for  2  week,  then  1     nightly
     Dates: start: 20120323, end: 20120401

REACTIONS (6)
  - Lymphadenitis [None]
  - Overdose [None]
  - Cardiac failure [None]
  - Renal failure [None]
  - Hepatic failure [None]
  - Drug reaction with eosinophilia and systemic symptoms [None]
